FAERS Safety Report 7688733-5 (Version None)
Quarter: 2011Q3

REPORT INFORMATION
  Report Type: 
  Country: None (occurrence: None)
  Receive Date: 20110817
  Receipt Date: 20110808
  Transmission Date: 20111222
  Serious: Yes (Hospitalization)
  Sender: FDA-Public Use
  Company Number: FR-GLAXOSMITHKLINE-B0740296A

PATIENT
  Sex: Male

DRUGS (3)
  1. CEFTAZIDIME [Suspect]
     Indication: OSTEITIS
     Route: 042
     Dates: start: 20100301
  2. MEROPENEM [Concomitant]
     Indication: OSTEITIS
     Route: 042
     Dates: start: 20100301
  3. COLISTINE [Concomitant]
     Indication: OSTEITIS
     Route: 042
     Dates: start: 20100301

REACTIONS (7)
  - DYSPNOEA [None]
  - DELIRIUM [None]
  - CONFUSIONAL STATE [None]
  - ACCIDENTAL OVERDOSE [None]
  - HALLUCINATION [None]
  - MOVEMENT DISORDER [None]
  - RENAL FAILURE [None]
